FAERS Safety Report 15798778 (Version 1)
Quarter: 2019Q1

REPORT INFORMATION
  Report Type: Spontaneous
  Country: US (occurrence: US)
  Receive Date: 20190108
  Receipt Date: 20190108
  Transmission Date: 20190417
  Serious: No
  Sender: FDA-Public Use
  Company Number: None

PATIENT
  Age: 55 Year
  Sex: Male
  Weight: 110.25 kg

DRUGS (3)
  1. CENTRUM SILVER DAILY VITAMIN [Concomitant]
  2. LISINOPRIL HTZ [Concomitant]
     Active Substance: HYDROCHLOROTHIAZIDE\LISINOPRIL
  3. TADALAFIL 20 MG TABLET [Suspect]
     Active Substance: TADALAFIL
     Indication: ERECTILE DYSFUNCTION
     Dosage: ?          QUANTITY:1 TABLET(S);OTHER FREQUENCY:1 HOUR PRIOR TO AC;?
     Route: 048
     Dates: start: 20190106, end: 20190108

REACTIONS (1)
  - Treatment failure [None]

NARRATIVE: CASE EVENT DATE: 20190108
